FAERS Safety Report 7369519-8 (Version None)
Quarter: 2011Q1

REPORT INFORMATION
  Report Type: 
  Country: None (occurrence: None)
  Receive Date: 20110323
  Receipt Date: 20110314
  Transmission Date: 20110831
  Serious: Yes (Other)
  Sender: FDA-Public Use
  Company Number: JP-ABBOTT-11P-087-0713231-00

PATIENT
  Age: 5 Year
  Sex: Male

DRUGS (7)
  1. KLACID DRY SYRUP [Suspect]
     Indication: ANTIBIOTIC THERAPY
     Dosage: DAILY DOSE: 230 MG
     Route: 048
     Dates: start: 20110308, end: 20110311
  2. TIPEPIDINE HIBENZATE [Concomitant]
     Indication: PRODUCT USED FOR UNKNOWN INDICATION
     Dates: start: 20110308
  3. PROCATEROL HYDROCHLORIDE HYDRATE [Concomitant]
     Indication: PRODUCT USED FOR UNKNOWN INDICATION
     Dates: start: 20110308
  4. AMBROXOL HYDROCHLORIDE [Concomitant]
     Indication: PRODUCT USED FOR UNKNOWN INDICATION
     Dates: start: 20110308
  5. CEFDITOREN PIVOXIL [Concomitant]
     Indication: PRODUCT USED FOR UNKNOWN INDICATION
     Dates: start: 20110307
  6. CHLORPHENIRAMINE MALEATE [Concomitant]
     Indication: PRODUCT USED FOR UNKNOWN INDICATION
     Dates: start: 20110308
  7. CARBOCISTEINE [Concomitant]
     Indication: PRODUCT USED FOR UNKNOWN INDICATION
     Dates: start: 20110308

REACTIONS (1)
  - CHROMATURIA [None]
